FAERS Safety Report 12082379 (Version 1)
Quarter: 2016Q1

REPORT INFORMATION
  Report Type: Report from Study
  Country: US (occurrence: US)
  Receive Date: 20160217
  Receipt Date: 20160217
  Transmission Date: 20160526
  Serious: No
  Sender: FDA-Public Use
  Company Number: US-AMGEN-USASL2016018586

PATIENT
  Sex: Female

DRUGS (1)
  1. ENBREL [Suspect]
     Active Substance: ETANERCEPT
     Indication: RHEUMATOID ARTHRITIS
     Dosage: UNK, QWK EVERY SATURDAY
     Route: 065

REACTIONS (3)
  - Inappropriate schedule of drug administration [Unknown]
  - Malaise [Unknown]
  - Mobility decreased [Unknown]

NARRATIVE: CASE EVENT DATE: 201602
